FAERS Safety Report 12392155 (Version 1)
Quarter: 2016Q2

REPORT INFORMATION
  Report Type: Spontaneous
  Country: US (occurrence: US)
  Receive Date: 20160523
  Receipt Date: 20160523
  Transmission Date: 20160815
  Serious: No
  Sender: FDA-Public Use
  Company Number: US-009507513-1605USA003165

PATIENT
  Age: 47 Year
  Sex: Female

DRUGS (3)
  1. MELATONIN [Concomitant]
     Active Substance: MELATONIN
  2. BELSOMRA [Suspect]
     Active Substance: SUVOREXANT
     Dosage: 30 MG, PRN
     Route: 048
  3. BELSOMRA [Suspect]
     Active Substance: SUVOREXANT
     Indication: INSOMNIA
     Dosage: 20 MG, PRN
     Route: 048

REACTIONS (3)
  - Overdose [Unknown]
  - Headache [Unknown]
  - Wrong technique in product usage process [Unknown]
